FAERS Safety Report 8472583-6 (Version None)
Quarter: 2012Q2

REPORT INFORMATION
  Report Type: 
  Country: None (occurrence: None)
  Receive Date: 20120627
  Receipt Date: 20120410
  Transmission Date: 20120825
  Serious: No
  Sender: FDA-Public Use
  Company Number: US-AMGEN-USASP2012022544

PATIENT
  Age: 77 Year
  Sex: Female

DRUGS (11)
  1. COREG [Concomitant]
     Dosage: 2 MG, QD
  2. CARDURA [Concomitant]
     Dosage: 1 MG, QD
  3. BENICAR [Concomitant]
     Dosage: 2 MG, QD
  4. HEPARIN [Concomitant]
     Dosage: UNK
  5. CLONIDINE [Concomitant]
     Dosage: 3 MG, QD
  6. IMDUR [Concomitant]
     Dosage: 4 MG, QD
  7. EPOGEN [Suspect]
     Dosage: 3000 IU, 2 TIMES/WK
  8. DIALYVITE [Concomitant]
     Dosage: UNK
  9. EPOGEN [Suspect]
     Indication: RENAL FAILURE CHRONIC
     Dosage: 1000 IU, 2 TIMES/WK
     Route: 058
  10. RENVELA [Concomitant]
     Dosage: 3 MG, QD
  11. LIPITOR [Concomitant]
     Dosage: 1 MG, QD

REACTIONS (3)
  - BONE PAIN [None]
  - BEDRIDDEN [None]
  - GAIT DISTURBANCE [None]
